FAERS Safety Report 4284826-3 (Version None)
Quarter: 2004Q1

REPORT INFORMATION
  Report Type: 
  Country: None (occurrence: None)
  Receive Date: 20040202
  Receipt Date: 20040122
  Transmission Date: 20041129
  Serious: Yes (Hospitalization)
  Sender: FDA-Public Use
  Company Number: 2004CG00157

PATIENT
  Age: 80 Year
  Sex: Female
  Weight: 67 kg

DRUGS (4)
  1. ATACAND [Suspect]
     Indication: HYPERTENSION
     Dosage: 8 MG DAILY PO
     Dates: start: 20030101, end: 20031206
  2. BISOPROLOL FUMARATE [Suspect]
     Indication: HYPERTENSION
     Dosage: 5 MG DAILY PO
     Dates: start: 20030101, end: 20031206
  3. FLUDEX [Suspect]
     Indication: HYPERTENSION
     Dosage: 1.5 MG DAILY PO
     Dates: start: 20030101, end: 20031206
  4. VIT K ANTAGONISTS [Concomitant]

REACTIONS (7)
  - ANOREXIA [None]
  - ASTHENIA [None]
  - BLOOD CHLORIDE DECREASED [None]
  - BLOOD POTASSIUM DECREASED [None]
  - BLOOD SODIUM DECREASED [None]
  - CONFUSIONAL STATE [None]
  - URINE SODIUM INCREASED [None]
